FAERS Safety Report 15281102 (Version 2)
Quarter: 2018Q3

REPORT INFORMATION
  Report Type: Spontaneous
  Country: US (occurrence: US)
  Receive Date: 20180815
  Receipt Date: 20180924
  Transmission Date: 20181010
  Serious: Yes (Hospitalization)
  Sender: FDA-Public Use
  Company Number: US-IMPAX LABORATORIES, INC-2018-IPXL-02639

PATIENT
  Age: 70 Year
  Sex: Male

DRUGS (3)
  1. RYTARY [Suspect]
     Active Substance: CARBIDOPA\LEVODOPA
     Indication: PARKINSON^S DISEASE
     Dosage: UNK, OVER MEDICATED DOSE
     Route: 065
  2. RYTARY [Suspect]
     Active Substance: CARBIDOPA\LEVODOPA
     Dosage: 48.75/195 MG, THREE CAPSULES AT 7 AM, 12 NOON, AND AT 5 PM, AND TWO CAPSULES AT 10 PM
     Route: 065
     Dates: start: 2018
  3. RYTARY [Suspect]
     Active Substance: CARBIDOPA\LEVODOPA
     Dosage: UNK, ADJUSTED DOSE
     Route: 065
     Dates: start: 2018, end: 20180802

REACTIONS (3)
  - Mental disorder [Unknown]
  - Dementia [Unknown]
  - Hallucination [Unknown]
